FAERS Safety Report 7439467-3 (Version None)
Quarter: 2011Q2

REPORT INFORMATION
  Report Type: 
  Country: None (occurrence: None)
  Receive Date: 20110427
  Receipt Date: 20110426
  Transmission Date: 20111010
  Serious: Yes (Other)
  Sender: FDA-Public Use
  Company Number: US-RB-024602-11

PATIENT
  Age: 52 Year
  Sex: Female

DRUGS (3)
  1. MUCINEX [Suspect]
     Route: 048
  2. DILTIAZEM [Concomitant]
     Indication: HYPERTENSION
  3. TOPRIL LX [Concomitant]
     Indication: HYPERTENSION

REACTIONS (2)
  - BLOOD PRESSURE INCREASED [None]
  - INCORRECT DRUG ADMINISTRATION DURATION [None]
